FAERS Safety Report 11309858 (Version 2)
Quarter: 2015Q3

REPORT INFORMATION
  Report Type: Report from Study
  Country: CA (occurrence: CA)
  Receive Date: 20150724
  Receipt Date: 20150904
  Transmission Date: 20151125
  Serious: Yes (Other)
  Sender: FDA-Public Use
  Company Number: CA-SA-2015SA107505

PATIENT
  Age: 64 Year
  Sex: Male
  Weight: 127.2 kg

DRUGS (7)
  1. METFORMIN HYDROCHLORIDE. [Concomitant]
     Active Substance: METFORMIN HYDROCHLORIDE
     Dates: start: 20030124
  2. ASA [Concomitant]
     Active Substance: ASPIRIN
     Dates: start: 20060926
  3. INSULIN GLARGINE [Suspect]
     Active Substance: INSULIN GLARGINE
     Indication: TYPE 2 DIABETES MELLITUS
     Route: 058
     Dates: start: 20150604
  4. AVALIDE [Concomitant]
     Active Substance: HYDROCHLOROTHIAZIDE\IRBESARTAN
     Dosage: DOSE:1 UNIT(S)
     Route: 048
     Dates: start: 20041028
  5. LANTUS [Concomitant]
     Active Substance: INSULIN GLARGINE
     Dosage: DOSE:80 UNIT(S)
     Dates: start: 20090205, end: 20150603
  6. INVOKANA [Concomitant]
     Active Substance: CANAGLIFLOZIN
     Dates: start: 20150108
  7. LIPITOR [Concomitant]
     Active Substance: ATORVASTATIN CALCIUM
     Dates: start: 20021016

REACTIONS (1)
  - Loss of consciousness [Recovered/Resolved]

NARRATIVE: CASE EVENT DATE: 20150611
